FAERS Safety Report 12838898 (Version 1)
Quarter: 2016Q4

REPORT INFORMATION
  Report Type: Spontaneous
  Country: US (occurrence: US)
  Receive Date: 20161010
  Receipt Date: 20161010
  Transmission Date: 20170207
  Serious: Yes (Other)
  Sender: FDA-Public Use
  Company Number: None

PATIENT
  Age: 38 Year
  Sex: Female
  Weight: 120.6 kg

DRUGS (4)
  1. BUPROPION XL 300MG TABLETS ZYDUS [Suspect]
     Active Substance: BUPROPION
     Indication: DEPRESSION
     Dosage: ?          QUANTITY:30 TABLET(S);?
     Route: 048
     Dates: start: 20160902, end: 20161001
  2. KROGER MULTI-VITAMIN [Concomitant]
  3. LEXAPRO [Concomitant]
     Active Substance: ESCITALOPRAM OXALATE
  4. WELLBUTRIN XL [Concomitant]
     Active Substance: BUPROPION HYDROCHLORIDE

REACTIONS (5)
  - Disorientation [None]
  - Headache [None]
  - Product substitution issue [None]
  - Dizziness [None]
  - Head discomfort [None]

NARRATIVE: CASE EVENT DATE: 20160909
